FAERS Safety Report 12138077 (Version 1)
Quarter: 2016Q1

REPORT INFORMATION
  Report Type: Spontaneous
  Country: US (occurrence: US)
  Receive Date: 20160302
  Receipt Date: 20160302
  Transmission Date: 20160526
  Serious: Yes (Hospitalization)
  Sender: FDA-Public Use
  Company Number: US-ASTRAZENECA-2016SE20656

PATIENT
  Age: 29 Year
  Sex: Female
  Weight: 81.8 kg

DRUGS (26)
  1. TESSALON [Concomitant]
     Active Substance: BENZONATATE
     Indication: COUGH
     Dosage: 1 DF THREE TIMES DAILY AS NEEDED
     Route: 048
  2. ZOFRAN [Concomitant]
     Active Substance: ONDANSETRON HYDROCHLORIDE
     Indication: NAUSEA
     Dosage: 1 DF EVERY EIGHT HOURS AS NEEDED
     Route: 048
  3. DOXYCYCLINE. [Concomitant]
     Active Substance: DOXYCYCLINE
  4. BENTYL [Concomitant]
     Active Substance: DICYCLOMINE HYDROCHLORIDE
  5. SOMA [Concomitant]
     Active Substance: CARISOPRODOL
     Dosage: 1 DF THREE TIMES DAILY AS NEEDED
     Route: 048
  6. LIDODERM [Concomitant]
     Active Substance: LIDOCAINE
     Dosage: PLACE 1 PATCH ON SKIN EVERY 24 HRS, LEAVE ON SKIN UPTO 12 HRS, WITHIN 24 HR PERIOD
     Route: 061
  7. ACTIGALL [Concomitant]
     Active Substance: URSODIOL
     Route: 048
  8. ULTRAM [Concomitant]
     Active Substance: TRAMADOL HYDROCHLORIDE
  9. PULMICORT-UNKNOWN [Suspect]
     Active Substance: BUDESONIDE
     Route: 055
  10. BOSUTINIB [Suspect]
     Active Substance: BOSUTINIB
     Indication: CHRONIC MYELOID LEUKAEMIA
     Route: 048
     Dates: start: 20151214
  11. XANAX [Concomitant]
     Active Substance: ALPRAZOLAM
     Dosage: 1-2 TABLETS TWO TIMES A DAY AS NEEDED
     Route: 048
  12. DIPHENHYDRAMINE. [Concomitant]
     Active Substance: DIPHENHYDRAMINE
     Dosage: 1 DF AT BEDTIME AS NEEDED
     Route: 048
  13. NEURONTIN [Concomitant]
     Active Substance: GABAPENTIN
     Route: 048
  14. ALEVE [Concomitant]
     Active Substance: NAPROXEN SODIUM
     Dosage: 1 DF TWO TIMES DAILY AS NEEDED
     Route: 048
  15. DESYREL [Concomitant]
     Active Substance: TRAZODONE HYDROCHLORIDE
     Route: 048
  16. CEFTRIAXONE. [Concomitant]
     Active Substance: CEFTRIAXONE
  17. LEXAPRO [Concomitant]
     Active Substance: ESCITALOPRAM OXALATE
     Route: 048
  18. XOPENEX HFA [Concomitant]
     Active Substance: LEVALBUTEROL TARTRATE
     Dosage: 2 PUFFS EVENRY FOUR TO SIX HOURS AS NEEDED
     Route: 048
  19. BOSUTINIB [Suspect]
     Active Substance: BOSUTINIB
     Indication: CHRONIC MYELOID LEUKAEMIA
     Route: 048
     Dates: start: 20151009, end: 20151030
  20. ELAVIL [Concomitant]
     Active Substance: AMITRIPTYLINE HYDROCHLORIDE
     Route: 048
  21. MELATONIN [Concomitant]
     Active Substance: MELATONIN
     Dosage: 1 DF AT BEDTIME AS NEEDED
     Route: 048
  22. PRILOSEC [Suspect]
     Active Substance: OMEPRAZOLE MAGNESIUM
     Route: 048
  23. ACCUNEB [Concomitant]
     Active Substance: ALBUTEROL SULFATE
     Dosage: 1.25 MG/M3 EVERY FOUR TO SIX HOURS AS NEEDED, NEB SOLUTION
     Route: 055
  24. DUPHALAC [Concomitant]
     Active Substance: LACTULOSE
     Dosage: 10 GM/15 ML, AS NEEDED
     Route: 048
  25. PROTONIX [Concomitant]
     Active Substance: PANTOPRAZOLE SODIUM
     Route: 048
  26. MIRALAX [Concomitant]
     Active Substance: POLYETHYLENE GLYCOL 3350
     Dosage: 3350 17 G PACKET; MIX CONTENTS IN WATER AND DRINK TWI TIMES DAILY, CAN USE IT UPTO FOUR TIMES DAILY

REACTIONS (2)
  - Pneumonia [Recovered/Resolved]
  - Dermatitis allergic [Unknown]
